APPROVED DRUG PRODUCT: DOXORUBICIN HYDROCHLORIDE
Active Ingredient: DOXORUBICIN HYDROCHLORIDE
Strength: 20MG/VIAL
Dosage Form/Route: INJECTABLE;INJECTION
Application: A208888 | Product #001 | TE Code: AP
Applicant: AMNEAL EU LTD
Approved: Feb 17, 2017 | RLD: No | RS: No | Type: RX